FAERS Safety Report 6577877-7 (Version None)
Quarter: 2010Q1

REPORT INFORMATION
  Report Type: 
  Country: None (occurrence: None)
  Receive Date: 20100211
  Receipt Date: 20100201
  Transmission Date: 20100710
  Serious: Yes (Disabling)
  Sender: FDA-Public Use
  Company Number: FR-PFIZER INC-2010012593

PATIENT
  Age: 79 Year
  Sex: Male

DRUGS (6)
  1. ZOXAN [Suspect]
     Indication: HYPERTENSION
     Dosage: 4 MG, 1X/DAY
     Route: 048
     Dates: end: 20091101
  2. PLAVIX [Suspect]
     Dosage: 75 MG, 1X/DAY
     Route: 048
  3. TEMESTA [Suspect]
     Dosage: 1.5 DF, 1X/DAY
     Route: 048
  4. FUROSEMIDE [Suspect]
     Dosage: UNK
     Route: 048
     Dates: end: 20091101
  5. VERAPAMIL-RATIOPHARM [Suspect]
     Dosage: 40 MG, UNK
     Route: 048
  6. STABLON [Concomitant]

REACTIONS (1)
  - DERMATITIS EXFOLIATIVE [None]
